FAERS Safety Report 4646083-5 (Version None)
Quarter: 2005Q2

REPORT INFORMATION
  Report Type: 
  Country: None (occurrence: None)
  Receive Date: 20050427
  Receipt Date: 20040510
  Transmission Date: 20051028
  Serious: No
  Sender: FDA-Public Use
  Company Number: US-GLAXOSMITHKLINE-A0510327A

PATIENT
  Sex: Female

DRUGS (6)
  1. ZOFRAN [Suspect]
     Indication: NAUSEA
  2. MECLIZINE [Suspect]
     Indication: NAUSEA
  3. SCOPOLAMINE PATCH [Suspect]
     Indication: NAUSEA
     Route: 062
  4. PHENERGAN [Concomitant]
  5. COMPAZINE [Concomitant]
  6. ANTIVERT [Concomitant]

REACTIONS (1)
  - DIZZINESS [None]
